FAERS Safety Report 9349944 (Version 12)
Quarter: 2017Q3

REPORT INFORMATION
  Report Type: Report from Study
  Country: DK (occurrence: DK)
  Receive Date: 20130614
  Receipt Date: 20170711
  Transmission Date: 20171128
  Serious: Yes (Death, Hospitalization, Disabling)
  Sender: FDA-Public Use
  Company Number: PHHO2013DK007646

PATIENT
  Age: 56 Year
  Sex: Female
  Weight: 49.7 kg

DRUGS (3)
  1. SOM230 [Suspect]
     Active Substance: PASIREOTIDE
     Indication: PANCREATIC NEUROENDOCRINE TUMOUR
     Dosage: 60 MG, QW4
     Route: 042
     Dates: start: 20121113, end: 20130605
  2. RAD 666 / RAD 001A [Suspect]
     Active Substance: EVEROLIMUS
     Indication: PANCREATIC NEUROENDOCRINE TUMOUR
     Dosage: 10 MG, QD
     Route: 048
     Dates: start: 20121113, end: 20130606
  3. NOVOMIX [Concomitant]
     Active Substance: INSULIN ASPART
     Indication: DIABETES MELLITUS
     Dosage: 22 U,  (14U+8U)
     Route: 065
     Dates: start: 20121127

REACTIONS (4)
  - Sepsis [Fatal]
  - Renal failure [Fatal]
  - Hepatic failure [Fatal]
  - Thrombocytopenia [Not Recovered/Not Resolved]

NARRATIVE: CASE EVENT DATE: 20130601
